FAERS Safety Report 19159619 (Version 3)
Quarter: 2021Q2

REPORT INFORMATION
  Report Type: Report from Study
  Country: CO (occurrence: CO)
  Receive Date: 20210420
  Receipt Date: 20210430
  Transmission Date: 20210717
  Serious: Yes (Hospitalization, Other)
  Sender: FDA-Public Use
  Company Number: CO-AMGEN-COLSL2021034752

PATIENT
  Age: 31 Year
  Sex: Female

DRUGS (3)
  1. NPLATE [Suspect]
     Active Substance: ROMIPLOSTIM
     Dosage: UNK
     Route: 058
     Dates: start: 20210423
  2. NPLATE [Suspect]
     Active Substance: ROMIPLOSTIM
     Indication: IMMUNE THROMBOCYTOPENIA
     Dosage: 750 MICROGRAM, QWK
     Route: 058
     Dates: start: 20190122
  3. NPLATE [Suspect]
     Active Substance: ROMIPLOSTIM
     Dosage: 652 MILLIGRAM, QWK
     Route: 058
     Dates: end: 20210325

REACTIONS (2)
  - Thrombocytosis [Not Recovered/Not Resolved]
  - Thrombocytopenia [Not Recovered/Not Resolved]

NARRATIVE: CASE EVENT DATE: 20210301
